FAERS Safety Report 6706668-9 (Version None)
Quarter: 2010Q2

REPORT INFORMATION
  Report Type: 
  Country: None (occurrence: None)
  Receive Date: 20100503
  Receipt Date: 20100402
  Transmission Date: 20101027
  Serious: No
  Sender: FDA-Public Use
  Company Number: US-BAYER-201013912BCC

PATIENT
  Age: 42 Year
  Sex: Female
  Weight: 86 kg

DRUGS (3)
  1. ALEVE (CAPLET) [Suspect]
     Indication: HEADACHE
     Dosage: TOTAL DAILY DOSE: 440 MG  UNIT DOSE: 220 MG
     Route: 048
     Dates: start: 20100402
  2. CELEXA [Concomitant]
  3. ELAVIL [Concomitant]

REACTIONS (1)
  - ABDOMINAL PAIN UPPER [None]
